FAERS Safety Report 21794153 (Version 1)
Quarter: 2022Q4

REPORT INFORMATION
  Report Type: Spontaneous
  Country: GB (occurrence: GB)
  Receive Date: 20221229
  Receipt Date: 20221229
  Transmission Date: 20230113
  Serious: Yes (Other)
  Sender: FDA-Public Use
  Company Number: None

PATIENT
  Age: 55 Year
  Sex: Female
  Weight: 134 kg

DRUGS (19)
  1. TRAZODONE [Suspect]
     Active Substance: TRAZODONE HYDROCHLORIDE
     Indication: Product used for unknown indication
     Dosage: 50 MILLIGRAM (FOLLOWING STOPPING DULOXETINE AND THEN 2 DAY BR)
     Route: 065
     Dates: start: 20221129
  2. BACLOFEN [Concomitant]
     Active Substance: BACLOFEN
     Dosage: UNK (TAKE THREE TABLETS ON A MORNING 3 TABLETS AT L)
     Route: 065
     Dates: start: 20190822
  3. BISACODYL [Concomitant]
     Active Substance: BISACODYL
     Indication: Constipation
     Dosage: 2 DOSAGE FORM, HS (AT NIGHT)
     Route: 065
     Dates: start: 20140807
  4. COLESEVELAM HYDROCHLORIDE [Concomitant]
     Active Substance: COLESEVELAM HYDROCHLORIDE
     Dosage: 1 DOSAGE FORM, BID (AS DIRECTED BY THE)
     Route: 065
     Dates: start: 20210302
  5. CREON [Concomitant]
     Active Substance: PANCRELIPASE AMYLASE\PANCRELIPASE LIPASE\PANCRELIPASE PROTEASE
     Dosage: 4 DOSAGE FORM, TID
     Route: 065
     Dates: start: 20160805
  6. DIAZEPAM [Concomitant]
     Active Substance: DIAZEPAM
     Dosage: 1 DOSAGE FORM, Q8H (ON DIRECTION OF SPECIALIST)
     Route: 065
     Dates: start: 20140606
  7. DOXYCYCLINE [Concomitant]
     Active Substance: DOXYCYCLINE
     Dosage: UNK (TWO NOW THEN ONE DAILY)
     Route: 065
     Dates: start: 20221021, end: 20221028
  8. DULOXETINE [Concomitant]
     Active Substance: DULOXETINE
     Dosage: 2 DOSAGE FORM, QD (2 DAILY)
     Route: 065
     Dates: start: 20221216
  9. ESOMEPRAZOLE [Concomitant]
     Active Substance: ESOMEPRAZOLE
     Dosage: 1 DOSAGE FORM, BID (AND IF SYMPTOMS BETTER RED)
     Route: 065
     Dates: start: 20161005
  10. FERROUS FUMARATE [Concomitant]
     Active Substance: FERROUS FUMARATE
     Indication: Iron deficiency
     Dosage: 1 DOSAGE FORM, QD (ANAE)
     Route: 065
     Dates: start: 20181019
  11. FUROSEMIDE [Concomitant]
     Active Substance: FUROSEMIDE
     Dosage: 2 DOSAGE FORM, QD (EACH MORNING TO REMOVE FLUID FROM THE)
     Route: 065
     Dates: start: 20140722
  12. BUTYLSCOPOLAMINE BROMIDE [Concomitant]
     Active Substance: BUTYLSCOPOLAMINE BROMIDE
     Dosage: UNK (TAKE TWO UP TO  4 TIMES/DAY WHEN REQUIRED)
     Route: 065
     Dates: start: 20170126
  13. INVITA D3 [Concomitant]
     Dosage: 1 DOSAGE FORM, MONTHLY (MAINTENANCE: TAKE ONE CAPSULE PER MONTH FOR PRE)
     Route: 065
     Dates: start: 20200217
  14. ACETAMINOPHEN [Concomitant]
     Active Substance: ACETAMINOPHEN
     Dosage: 2 DOSAGE FORM, QID
     Route: 065
     Dates: start: 20181019
  15. PREDNISOLONE [Concomitant]
     Active Substance: PREDNISOLONE
     Dosage: 6 DOSAGE FORM, QD
     Route: 065
     Dates: start: 20221021, end: 20221022
  16. PROMETHAZINE HYDROCHLORIDE [Concomitant]
     Active Substance: PROMETHAZINE HYDROCHLORIDE
     Dosage: 1 DOSAGE FORM, QD (AT NIGHT AS ADVISED BY)
     Route: 065
     Dates: start: 20140722
  17. ALBUTEROL [Concomitant]
     Active Substance: ALBUTEROL
     Dosage: UNK (INHALE ONE OR TWO DOSES WHEN REQUIRED TO RELIEV)
     Route: 055
     Dates: start: 20180726
  18. SERTRALINE [Concomitant]
     Active Substance: SERTRALINE HYDROCHLORIDE
     Indication: Depressed mood
     Dosage: 1 DOSAGE FORM, BID
     Route: 065
     Dates: start: 20160830, end: 20220920
  19. MORPHINE SULFATE [Concomitant]
     Active Substance: MORPHINE SULFATE
     Dosage: 1 DOSAGE FORM, BID
     Route: 065
     Dates: start: 20191021

REACTIONS (9)
  - Peripheral coldness [Recovering/Resolving]
  - Lethargy [Recovering/Resolving]
  - Abdominal distension [Unknown]
  - Muscle spasms [Unknown]
  - Vomiting [Recovering/Resolving]
  - Abnormal loss of weight [Recovering/Resolving]
  - Malaise [Recovering/Resolving]
  - Decreased appetite [Unknown]
  - Nausea [Not Recovered/Not Resolved]

NARRATIVE: CASE EVENT DATE: 20221129
